FAERS Safety Report 15562507 (Version 2)
Quarter: 2018Q4

REPORT INFORMATION
  Report Type: Spontaneous
  Country: US (occurrence: US)
  Receive Date: 20181029
  Receipt Date: 20181207
  Transmission Date: 20190205
  Serious: No
  Sender: FDA-Public Use
  Company Number: US-PFIZER INC-2018430794

PATIENT
  Age: 68 Year
  Sex: Female
  Weight: 101.15 kg

DRUGS (5)
  1. ADVIL LIQUI-GELS [Suspect]
     Active Substance: IBUPROFEN
     Indication: SWELLING
  2. ADVIL LIQUI-GELS [Suspect]
     Active Substance: IBUPROFEN
     Indication: HEADACHE
  3. VENLAFAXINE [Concomitant]
     Active Substance: VENLAFAXINE HYDROCHLORIDE
     Dosage: 35 MG, DAILY
     Route: 048
  4. ADVIL LIQUI-GELS [Suspect]
     Active Substance: IBUPROFEN
     Indication: PAIN
     Dosage: 200 MG (TWO LIQUIGELS 5 DAYS A WEEK )
     Route: 048
     Dates: start: 2017
  5. OMEPRAZOLE. [Concomitant]
     Active Substance: OMEPRAZOLE
     Dosage: 20 MG, DAILY(IN THE MORNING)
     Route: 048

REACTIONS (1)
  - Hypertension [Not Recovered/Not Resolved]

NARRATIVE: CASE EVENT DATE: 201807
